FAERS Safety Report 13783944 (Version 1)
Quarter: 2017Q3

REPORT INFORMATION
  Report Type: Spontaneous
  Country: US (occurrence: US)
  Receive Date: 20170724
  Receipt Date: 20170724
  Transmission Date: 20171127
  Serious: Yes (Other)
  Sender: FDA-Public Use
  Company Number: PHHY2017US103911

PATIENT
  Age: 15 Year
  Sex: Male

DRUGS (4)
  1. ROPIVACAINE [Suspect]
     Active Substance: ROPIVACAINE
     Indication: COMPLEX REGIONAL PAIN SYNDROME
     Dosage: 10 ML,
     Route: 065
  2. TRIAMCINOLONE [Suspect]
     Active Substance: TRIAMCINOLONE
     Indication: COMPLEX REGIONAL PAIN SYNDROME
     Dosage: 40 MG,
     Route: 065
  3. CLONIDINE. [Suspect]
     Active Substance: CLONIDINE
     Indication: COMPLEX REGIONAL PAIN SYNDROME
     Dosage: 1 UG,
     Route: 065
  4. GABAPENTIN. [Concomitant]
     Active Substance: GABAPENTIN
     Indication: COMPLEX REGIONAL PAIN SYNDROME
     Route: 065

REACTIONS (4)
  - Anhidrosis [Recovered/Resolved]
  - Miosis [Recovered/Resolved]
  - Horner^s syndrome [Recovered/Resolved]
  - Eyelid ptosis [Recovered/Resolved]
